FAERS Safety Report 17588841 (Version 2)
Quarter: 2020Q2

REPORT INFORMATION
  Report Type: Spontaneous
  Country: US (occurrence: US)
  Receive Date: 20200327
  Receipt Date: 20200413
  Transmission Date: 20200713
  Serious: No
  Sender: FDA-Public Use
  Company Number: US-LUNDBECK-DKLU3014310

PATIENT
  Age: 10 Month
  Sex: Female

DRUGS (9)
  1. SABRIL [Suspect]
     Active Substance: VIGABATRIN
     Dosage: DAY 7 ONWARDS
     Route: 048
  2. SABRIL [Suspect]
     Active Substance: VIGABATRIN
     Dosage: DAY 1 TO 3
     Route: 048
     Dates: start: 20191218
  3. CEFDINIR. [Concomitant]
     Active Substance: CEFDINIR
     Indication: PRODUCT USED FOR UNKNOWN INDICATION
     Route: 065
     Dates: start: 20200228
  4. SULFATRIM PD [Concomitant]
     Indication: PRODUCT USED FOR UNKNOWN INDICATION
     Route: 065
     Dates: start: 20191217
  5. SABRIL [Suspect]
     Active Substance: VIGABATRIN
     Indication: INFANTILE SPASMS
     Dosage: DAY 1 TO 3
     Route: 048
     Dates: start: 20191217
  6. SABRIL [Suspect]
     Active Substance: VIGABATRIN
     Indication: PARTIAL SEIZURES
     Dosage: DAY 4 TO 6
     Route: 048
  7. CLONAZEPAM. [Concomitant]
     Active Substance: CLONAZEPAM
     Indication: PRODUCT USED FOR UNKNOWN INDICATION
     Route: 065
  8. LEVOTHYROXIN [Concomitant]
     Active Substance: LEVOTHYROXINE
     Indication: PRODUCT USED FOR UNKNOWN INDICATION
     Route: 065
     Dates: start: 20190812
  9. AMOXICILLIN/ POTASSIUM CLAVULANATE [Concomitant]
     Indication: PRODUCT USED FOR UNKNOWN INDICATION
     Route: 065
     Dates: start: 20200224

REACTIONS (2)
  - Retching [Not Recovered/Not Resolved]
  - Poor feeding infant [Not Recovered/Not Resolved]

NARRATIVE: CASE EVENT DATE: 201912
